FAERS Safety Report 7201230-6 (Version None)
Quarter: 2010Q4

REPORT INFORMATION
  Report Type: 
  Country: None (occurrence: None)
  Receive Date: 20101227
  Receipt Date: 20101227
  Transmission Date: 20110411
  Serious: No
  Sender: FDA-Public Use
  Company Number: None

PATIENT
  Age: 71 Year
  Sex: Female
  Weight: 63.9572 kg

DRUGS (2)
  1. CLONIDINE [Suspect]
     Indication: HYPERTENSION
     Dosage: 1 PATCH WEEKLY OTHER
     Route: 050
     Dates: start: 20101206, end: 20101213
  2. CLONIDINE [Suspect]
     Indication: HYPERTENSION
     Dosage: 1 PATCH WEEKLY OTHER
     Route: 050
     Dates: start: 20101213, end: 20101216

REACTIONS (5)
  - DRUG INEFFECTIVE [None]
  - DRY MOUTH [None]
  - FATIGUE [None]
  - PRODUCT ADHESION ISSUE [None]
  - SOMNOLENCE [None]
